FAERS Safety Report 8796241 (Version 1)
Quarter: 2012Q4

REPORT INFORMATION
  Report Type: 
  Country: US (occurrence: US)
  Receive Date: 20120920
  Receipt Date: 20120920
  Transmission Date: 20130627
  Serious: Yes (Hospitalization)
  Sender: FDA-Public Use
  Company Number: US-BAYER-2012-096893

PATIENT
  Age: 32 Year
  Sex: Female
  Weight: 137.42 kg

DRUGS (7)
  1. YASMIN [Suspect]
  2. IRON SUPPLEMENT [Concomitant]
     Dosage: UNK
     Dates: start: 20050901
  3. ACIDOPHILUS [Concomitant]
     Dosage: UNK
     Dates: start: 20080415
  4. L-GLUTAMINE [GLUTAMIC ACID] [Concomitant]
     Dosage: UNK
     Dates: start: 20080415
  5. ZYRTEC [Concomitant]
     Indication: RHINORRHOEA
     Dosage: UNK
     Dates: start: 20080415
  6. ASPIRIN [Concomitant]
     Indication: PAIN
     Dosage: UNK
     Dates: start: 20080415
  7. SLIM QUICK [Concomitant]
     Dosage: UNK
     Dates: start: 20080415

REACTIONS (1)
  - Deep vein thrombosis [None]
